FAERS Safety Report 26076669 (Version 1)
Quarter: 2025Q4

REPORT INFORMATION
  Report Type: Spontaneous
  Country: EU (occurrence: EU)
  Receive Date: 20251121
  Receipt Date: 20251121
  Transmission Date: 20260117
  Serious: Yes (Other)
  Sender: MYLAN
  Company Number: None

PATIENT
  Age: 77 Year
  Sex: Male

DRUGS (7)
  1. ATORVASTATIN [Suspect]
     Active Substance: ATORVASTATIN
     Indication: Dyslipidaemia
     Dosage: 80 MILLIGRAM, QD
     Dates: start: 202508, end: 20251022
  2. TICAGRELOR [Suspect]
     Active Substance: TICAGRELOR
     Indication: Myocardial infarction
     Dosage: 180 MILLIGRAM, QD
     Dates: start: 202508, end: 20251022
  3. KARDEGIC [Concomitant]
     Active Substance: ASPIRIN DL-LYSINE
     Indication: Myocardial infarction
     Dosage: 1 DOSAGE FORM, QD
  4. CARVEDILOL [Concomitant]
     Active Substance: CARVEDILOL
     Dosage: 6.25 MILLIGRAM, QD
     Dates: start: 202508
  5. DAPAGLIFLOZIN [Concomitant]
     Active Substance: DAPAGLIFLOZIN
     Dosage: 10 MILLIGRAM, QD
     Dates: start: 202508
  6. INSULIN GLARGINE [Concomitant]
     Active Substance: INSULIN GLARGINE
     Dosage: 28 INTERNATIONAL UNIT, QD
  7. INSULIN ASPART [Concomitant]
     Active Substance: INSULIN ASPART
     Dosage: 24 INTERNATIONAL UNIT, QD

REACTIONS (2)
  - Hepatic cytolysis [Recovering/Resolving]
  - Cholestasis [Recovering/Resolving]

NARRATIVE: CASE EVENT DATE: 20251022
